FAERS Safety Report 5110817-6 (Version None)
Quarter: 2006Q3

REPORT INFORMATION
  Report Type: 
  Country: None (occurrence: None)
  Receive Date: 20060919
  Receipt Date: 20060906
  Transmission Date: 20061208
  Serious: Yes (Other)
  Sender: FDA-Public Use
  Company Number: 2006AD000069

PATIENT
  Age: 32 Year
  Sex: Female

DRUGS (3)
  1. KEFLEX [Suspect]
     Indication: KIDNEY INFECTION
     Dates: start: 20060819
  2. FERROUS SULFATE /VIT B1/ VIT B6/VIT B 12 [Concomitant]
  3. FOLIC ACID [Concomitant]

REACTIONS (2)
  - DRUG EXPOSURE DURING PREGNANCY [None]
  - FOETAL MOVEMENTS DECREASED [None]
